FAERS Safety Report 10057609 (Version 2)
Quarter: 2015Q2

REPORT INFORMATION
  Report Type: Spontaneous
  Country: US (occurrence: US)
  Receive Date: 20140404
  Receipt Date: 20150518
  Transmission Date: 20150821
  Serious: Yes (Death)
  Sender: FDA-Public Use
  Company Number: US-BEH-2014041583

PATIENT
  Age: 21 Year
  Sex: Male

DRUGS (1)
  1. IVIG [Suspect]
     Active Substance: HUMAN IMMUNOGLOBULIN G
     Indication: HAEMOLYSIS

REACTIONS (3)
  - Haemoglobin decreased [Fatal]
  - Drug ineffective for unapproved indication [Unknown]
  - Drug ineffective for unapproved indication [Fatal]
